FAERS Safety Report 25224161 (Version 2)
Quarter: 2025Q3

REPORT INFORMATION
  Report Type: Spontaneous
  Country: EU (occurrence: EU)
  Receive Date: 20250422
  Receipt Date: 20250809
  Transmission Date: 20251020
  Serious: Yes (Hospitalization)
  Sender: ALEXION PHARMACEUTICALS
  Company Number: EU-AstraZeneca-CH-00851726A

PATIENT
  Age: 16 Year
  Sex: Female

DRUGS (1)
  1. STRENSIQ [Suspect]
     Active Substance: ASFOTASE ALFA
     Indication: Hypophosphatasia
     Dosage: 0.97 MILLILITER, SIX TIMES/WEEK

REACTIONS (10)
  - Influenza [Unknown]
  - Mental disorder [Unknown]
  - Visual impairment [Unknown]
  - Photophobia [Unknown]
  - Pain in extremity [Unknown]
  - Headache [Unknown]
  - Dizziness [Unknown]
  - Asthenia [Unknown]
  - Apathy [Unknown]
  - Fatigue [Unknown]
